FAERS Safety Report 7650051-9 (Version None)
Quarter: 2011Q3

REPORT INFORMATION
  Report Type: 
  Country: None (occurrence: None)
  Receive Date: 20110802
  Receipt Date: 20110802
  Transmission Date: 20111222
  Serious: Yes (Hospitalization)
  Sender: FDA-Public Use
  Company Number: None

PATIENT
  Age: 82 Year
  Sex: Male

DRUGS (18)
  1. ZOCOR [Concomitant]
     Route: 048
  2. VITAMIN D [Concomitant]
     Route: 048
  3. TRAMADOL HCL [Concomitant]
     Route: 048
  4. OMEPRAZOLE [Concomitant]
     Route: 048
  5. TERAZOSIN HCL [Concomitant]
  6. CIPROFLOXACIN HCL [Concomitant]
     Route: 048
  7. HYDRALAZINE HCL [Concomitant]
  8. TRUSOPT [Concomitant]
  9. TIMOLOL EYEDROPS [Concomitant]
     Route: 047
  10. NAPROSYN [Concomitant]
     Route: 048
  11. ATENOLOL [Concomitant]
     Route: 048
  12. AMBIEN [Concomitant]
     Route: 048
  13. LASIX [Concomitant]
     Route: 048
  14. ASPIRIN [Concomitant]
     Route: 048
  15. VIBRAMYCIN [Concomitant]
  16. WARFARIN SODIUM [Suspect]
     Indication: ATRIAL FIBRILLATION
     Dosage: 6 MG
     Route: 048
  17. LISINOPRIL [Concomitant]
     Route: 048
  18. ISOSORBID [Concomitant]
     Route: 048

REACTIONS (2)
  - DIZZINESS [None]
  - HAEMATURIA [None]
